FAERS Safety Report 4686728-7 (Version None)
Quarter: 2005Q2

REPORT INFORMATION
  Report Type: 
  Country: None (occurrence: None)
  Receive Date: 20050606
  Receipt Date: 20050525
  Transmission Date: 20051028
  Serious: Yes (Other)
  Sender: FDA-Public Use
  Company Number: GBS050517504

PATIENT
  Age: 41 Year
  Sex: Female

DRUGS (2)
  1. XIGRIS [Suspect]
     Dates: start: 20050524
  2. ANTIBIOTICS [Concomitant]

REACTIONS (1)
  - COAGULOPATHY [None]
